FAERS Safety Report 20236338 (Version 1)
Quarter: 2021Q4

REPORT INFORMATION
  Report Type: Spontaneous
  Country: US (occurrence: US)
  Receive Date: 20211228
  Receipt Date: 20211228
  Transmission Date: 20220303
  Serious: No
  Sender: FDA-Public Use
  Company Number: US-CELLTRION INC.-2021US014541

PATIENT

DRUGS (1)
  1. TRUXIMA [Suspect]
     Active Substance: RITUXIMAB-ABBS
     Indication: Juvenile idiopathic arthritis
     Dosage: DOSE OF 1000 (NO UNIT) WITH NO FREQUENCY LISTED
     Route: 065
     Dates: start: 20211028

REACTIONS (1)
  - Off label use [Unknown]
